FAERS Safety Report 11322964 (Version 5)
Quarter: 2015Q4

REPORT INFORMATION
  Report Type: Report from Study
  Country: US (occurrence: US)
  Receive Date: 20150730
  Receipt Date: 20151228
  Transmission Date: 20160304
  Serious: Yes (Disabling, Other)
  Sender: FDA-Public Use
  Company Number: PHEH2015US004470

PATIENT
  Age: 37 Year
  Sex: Female
  Weight: 68.27 kg

DRUGS (2)
  1. GILENYA [Suspect]
     Active Substance: FINGOLIMOD HYDROCHLORIDE
     Indication: MULTIPLE SCLEROSIS RELAPSE
     Dosage: 0.5 MG, QD
     Route: 048
     Dates: start: 20150219, end: 20151208
  2. BACLOFEN. [Concomitant]
     Active Substance: BACLOFEN
     Indication: MUSCLE SPASTICITY
     Dosage: UNK UNK, QD
     Route: 048

REACTIONS (12)
  - Back pain [Recovering/Resolving]
  - Nasopharyngitis [Unknown]
  - Musculoskeletal stiffness [Unknown]
  - Asthenia [Unknown]
  - Multiple sclerosis [Not Recovered/Not Resolved]
  - Generalised oedema [Recovering/Resolving]
  - Muscle strain [Not Recovered/Not Resolved]
  - Pain in extremity [Recovering/Resolving]
  - Acne [Not Recovered/Not Resolved]
  - Pain [Not Recovered/Not Resolved]
  - Headache [Not Recovered/Not Resolved]
  - Central nervous system lesion [Unknown]

NARRATIVE: CASE EVENT DATE: 20150219
